FAERS Safety Report 10751849 (Version 2)
Quarter: 2015Q1

REPORT INFORMATION
  Report Type: Spontaneous
  Country: US (occurrence: US)
  Receive Date: 20150130
  Receipt Date: 20150213
  Transmission Date: 20150721
  Serious: Yes (Other)
  Sender: FDA-Public Use
  Company Number: US-PFIZER INC-2015035618

PATIENT
  Sex: Male

DRUGS (1)
  1. XALKORI [Suspect]
     Active Substance: CRIZOTINIB
     Indication: OESOPHAGEAL CARCINOMA
     Dosage: 250 MG, 2X/DAY

REACTIONS (3)
  - Product use issue [Unknown]
  - Staphylococcal infection [Unknown]
  - Nausea [Unknown]
